FAERS Safety Report 8348079-9 (Version None)
Quarter: 2012Q2

REPORT INFORMATION
  Report Type: 
  Country: None (occurrence: None)
  Receive Date: 20120509
  Receipt Date: 20120427
  Transmission Date: 20120825
  Serious: Yes (Other)
  Sender: FDA-Public Use
  Company Number: JP-JNJFOC-20120506771

PATIENT
  Sex: Female

DRUGS (4)
  1. ACETAMINOPHEN [Suspect]
     Indication: NECK PAIN
     Route: 065
  2. ACETAMINOPHEN [Suspect]
     Indication: BACK PAIN
     Route: 065
  3. LOXONIN [Concomitant]
     Route: 065
  4. INDOMETHACIN [Concomitant]

REACTIONS (1)
  - HALLUCINATION, AUDITORY [None]
